FAERS Safety Report 12786884 (Version 1)
Quarter: 2016Q3

REPORT INFORMATION
  Report Type: Spontaneous
  Country: DE (occurrence: DE)
  Receive Date: 20160927
  Receipt Date: 20160927
  Transmission Date: 20161109
  Serious: Yes (Hospitalization, Other)
  Sender: FDA-Public Use
  Company Number: DE-FRESENIUS KABI-FK201607117

PATIENT
  Age: 74 Year
  Sex: Male

DRUGS (6)
  1. COLCHICINE. [Concomitant]
     Active Substance: COLCHICINE
     Indication: GOUTY ARTHRITIS
     Route: 065
  2. RAMIPRIL. [Concomitant]
     Active Substance: RAMIPRIL
     Indication: HYPERTENSION
     Route: 065
  3. METOPROLOL. [Concomitant]
     Active Substance: METOPROLOL
     Indication: HYPERTENSION
     Route: 065
  4. ALLOPURINOL. [Suspect]
     Active Substance: ALLOPURINOL
     Indication: GOUTY ARTHRITIS
     Route: 065
  5. AMOXICILLIN (MANUFACTURER UNKNOWN) [Interacting]
     Active Substance: AMOXICILLIN
     Indication: URINARY TRACT INFECTION
     Route: 065
  6. FUROSEMIDE (MANUFACTURER UNKNOWN) [Suspect]
     Active Substance: FUROSEMIDE
     Indication: DIURETIC THERAPY
     Route: 065

REACTIONS (16)
  - Urine output decreased [None]
  - Abdominal pain [None]
  - Hydronephrosis [None]
  - Gout [None]
  - Drug hypersensitivity [Unknown]
  - Drug interaction [Unknown]
  - Hypersensitivity vasculitis [None]
  - Nausea [None]
  - Dermatitis allergic [None]
  - Drug ineffective [Unknown]
  - Diarrhoea [None]
  - Vomiting [None]
  - Weight decreased [None]
  - Dehydration [None]
  - Blood potassium decreased [None]
  - Nephrolithiasis [None]
